FAERS Safety Report 22294970 (Version 1)
Quarter: 2023Q2

REPORT INFORMATION
  Report Type: Spontaneous
  Country: US (occurrence: US)
  Receive Date: 20230508
  Receipt Date: 20230508
  Transmission Date: 20230721
  Serious: No
  Sender: FDA-Public Use
  Company Number: US-TEVA-2023-US-2881238

PATIENT
  Sex: Male

DRUGS (1)
  1. DEXTROAMPHET SACCHARAT, AMPHET ASPARTATE, DEXTROAMPHET SULFATE AND AMP [Suspect]
     Active Substance: AMPHETAMINE ASPARTATE\AMPHETAMINE ASPARTATE MONOHYDRATE\AMPHETAMINE SULFATE\DEXTROAMPHETAMINE SACCHA
     Indication: Attention deficit hyperactivity disorder
     Dosage: 15MG
     Route: 065

REACTIONS (9)
  - Feeling abnormal [Recovered/Resolved]
  - Illness [Recovered/Resolved]
  - Dyspnoea [Unknown]
  - Abdominal pain upper [Unknown]
  - Irritability [Unknown]
  - Depression [Unknown]
  - Anxiety [Unknown]
  - Anger [Unknown]
  - Disturbance in attention [Unknown]

NARRATIVE: CASE EVENT DATE: 20230101
